FAERS Safety Report 6157562-6 (Version None)
Quarter: 2009Q2

REPORT INFORMATION
  Report Type: 
  Country: None (occurrence: None)
  Receive Date: 20090416
  Receipt Date: 20090402
  Transmission Date: 20091009
  Serious: Yes (Hospitalization)
  Sender: FDA-Public Use
  Company Number: TW-ROCHE-572675

PATIENT
  Sex: Female

DRUGS (6)
  1. PEG-INTERFERON ALFA 2A (RO 25-8310) [Suspect]
     Route: 058
     Dates: start: 20080129
  2. RIBAVIRIN [Suspect]
     Route: 048
     Dates: start: 20080129, end: 20080421
  3. RIBAVIRIN [Suspect]
     Dosage: DOSE REDUCED
     Route: 048
     Dates: start: 20080422
  4. ELTROMBOPAG [Suspect]
     Indication: THROMBOCYTOPENIA
     Dosage: OPEN-LABEL TREATMENT
     Route: 048
     Dates: start: 20080115, end: 20080130
  5. BLINDED ELTROMBOPAG [Suspect]
     Indication: THROMBOCYTOPENIA
     Dosage: BLINDED TREATMENT
     Route: 048
     Dates: start: 20080130, end: 20080325
  6. BLINDED ELTROMBOPAG [Suspect]
     Dosage: DOSE INCREASED
     Route: 048
     Dates: start: 20080325

REACTIONS (1)
  - URETHRAL POLYP [None]
